FAERS Safety Report 18711422 (Version 1)
Quarter: 2021Q1

REPORT INFORMATION
  Report Type: Spontaneous
  Country: NG (occurrence: NG)
  Receive Date: 20210107
  Receipt Date: 20210107
  Transmission Date: 20210419
  Serious: Yes (Other)
  Sender: FDA-Public Use
  Company Number: NG-RECKITT BENCKISER HEALTHCARE INT LIMITED-RB-80524-2021

PATIENT
  Sex: Female

DRUGS (1)
  1. DETTOL FIRST AID ANTISEPTIC [Suspect]
     Active Substance: CHLOROXYLENOL
     Indication: SUICIDE ATTEMPT
     Dosage: UNK
     Route: 048

REACTIONS (2)
  - Intentional product misuse [Unknown]
  - Suicide attempt [Unknown]
